FAERS Safety Report 11812168 (Version 1)
Quarter: 2015Q4

REPORT INFORMATION
  Report Type: Spontaneous
  Country: DE (occurrence: DE)
  Receive Date: 20151208
  Receipt Date: 20151208
  Transmission Date: 20160305
  Serious: Yes (Other)
  Sender: FDA-Public Use
  Company Number: DE-TEVA-614864GER

PATIENT
  Sex: Female

DRUGS (1)
  1. QUETIAPIN-RATIOPHARM 150 MG RETARDTABLETTEN [Suspect]
     Active Substance: QUETIAPINE
     Route: 048

REACTIONS (1)
  - Renal cyst haemorrhage [Unknown]
